FAERS Safety Report 4529375-X (Version None)
Quarter: 2004Q4

REPORT INFORMATION
  Report Type: 
  Country: None (occurrence: None)
  Receive Date: 20041214
  Receipt Date: 20041202
  Transmission Date: 20050328
  Serious: Yes (Hospitalization)
  Sender: FDA-Public Use
  Company Number: 2004CG02427

PATIENT
  Age: 55 Year
  Sex: Female

DRUGS (1)
  1. XYLOCAINE [Suspect]
     Indication: LOCAL ANAESTHESIA
     Dosage: 1.2 ML ONCE SQ
     Route: 058
     Dates: start: 20041015, end: 20041015

REACTIONS (5)
  - ASTHENIA [None]
  - FEELING ABNORMAL [None]
  - MALAISE [None]
  - MENTAL DISORDER [None]
  - NERVOUS SYSTEM DISORDER [None]
